FAERS Safety Report 8900625 (Version 1)
Quarter: 2012Q4

REPORT INFORMATION
  Report Type: Report from Study
  Country: US (occurrence: US)
  Receive Date: 20121109
  Receipt Date: 20121109
  Transmission Date: 20130627
  Serious: Yes (Death)
  Sender: FDA-Public Use
  Company Number: US-BAXTER-2012BAX021336

PATIENT
  Sex: Male

DRUGS (2)
  1. GAMMAGARD LIQUID [Suspect]
     Indication: NEUROPATHY
     Route: 042
  2. GAMMAGARD LIQUID [Suspect]
     Indication: INTENTIONAL USE FOR UNLABELED INDICATION

REACTIONS (1)
  - Cardiac disorder [Fatal]
